FAERS Safety Report 7980695-6 (Version None)
Quarter: 2011Q4

REPORT INFORMATION
  Report Type: 
  Country: None (occurrence: None)
  Receive Date: 20111214
  Receipt Date: 20111205
  Transmission Date: 20120403
  Serious: Yes (Other)
  Sender: FDA-Public Use
  Company Number: US-ELI_LILLY_AND_COMPANY-US201110003427

PATIENT
  Sex: Female
  Weight: 76.19 kg

DRUGS (14)
  1. HUMALOG MIX 75/25 [Suspect]
     Dosage: 35 U, EACH MORNING
  2. ZANTAC [Concomitant]
     Dosage: UNK
  3. ZOLOFT [Concomitant]
     Dosage: UNK
  4. HUMALOG MIX 75/25 [Suspect]
     Indication: DIABETES MELLITUS
     Dosage: 35 U, EACH MORNING
     Route: 058
     Dates: start: 20110623
  5. COZAAR [Concomitant]
     Dosage: UNK
  6. BENTYL [Concomitant]
     Dosage: UNK
  7. HUMALOG MIX 75/25 [Suspect]
     Dosage: 45 U, EACH EVENING
  8. MAG-OX [Concomitant]
     Dosage: UNK
  9. ASPIRIN [Concomitant]
     Dosage: UNK
  10. ZOCOR [Concomitant]
     Dosage: UNK
  11. HUMALOG MIX 75/25 [Suspect]
     Dosage: 45 U, EACH EVENING
  12. TOPROL-XL [Concomitant]
     Dosage: UNK
  13. PLAVIX [Concomitant]
     Dosage: UNK
  14. KLONOPIN [Concomitant]
     Dosage: UNK

REACTIONS (3)
  - HYPOGLYCAEMIA [None]
  - BLINDNESS [None]
  - VERTIGO [None]
